FAERS Safety Report 8909314 (Version 2)
Quarter: 2013Q1

REPORT INFORMATION
  Report Type: Spontaneous
  Country: JP (occurrence: JP)
  Receive Date: 20121115
  Receipt Date: 20130206
  Transmission Date: 20140127
  Serious: Yes (Hospitalization)
  Sender: FDA-Public Use
  Company Number: JP-009507513-1210JPN005333

PATIENT
  Age: 79 Year
  Sex: Female

DRUGS (1)
  1. JANUVIA TABLETS 50MG [Suspect]
     Indication: DIABETES MELLITUS
     Dosage: 50 MG, QD
     Route: 048
     Dates: start: 20110430, end: 20120906

REACTIONS (2)
  - Pancreatic carcinoma [Not Recovered/Not Resolved]
  - Otitis media [Unknown]
